FAERS Safety Report 11420389 (Version 2)
Quarter: 2015Q4

REPORT INFORMATION
  Report Type: Report from Study
  Country: US (occurrence: US)
  Receive Date: 20150826
  Receipt Date: 20151103
  Transmission Date: 20160304
  Serious: Yes (Hospitalization)
  Sender: FDA-Public Use
  Company Number: US-VERTEX PHARMACEUTICALS-2015-003135

PATIENT
  Age: 15 Year
  Sex: Male

DRUGS (2)
  1. ORKAMBI [Suspect]
     Active Substance: IVACAFTOR\LUMACAFTOR
     Indication: CYSTIC FIBROSIS
     Dosage: 400/250 MG, BID
     Route: 048
     Dates: start: 20150718, end: 20150722
  2. ORKAMBI [Suspect]
     Active Substance: IVACAFTOR\LUMACAFTOR
     Dosage: 400/250 MG, BID
     Route: 048

REACTIONS (7)
  - Dyspnoea [Unknown]
  - Pulmonary function test decreased [Unknown]
  - Chest pain [Unknown]
  - Respiration abnormal [Unknown]
  - Diarrhoea [Unknown]
  - Nausea [Unknown]
  - Cystic fibrosis lung [Recovering/Resolving]

NARRATIVE: CASE EVENT DATE: 20150720
